FAERS Safety Report 23079231 (Version 2)
Quarter: 2023Q4

REPORT INFORMATION
  Report Type: Spontaneous
  Country: UZ (occurrence: UZ)
  Receive Date: 20231018
  Receipt Date: 20231106
  Transmission Date: 20240109
  Serious: Yes (Death)
  Sender: FDA-Public Use
  Company Number: UZ-JNJFOC-20231037849

PATIENT
  Age: 62 Year
  Sex: Male
  Weight: 87 kg

DRUGS (6)
  1. BEDAQUILINE [Suspect]
     Active Substance: BEDAQUILINE
     Indication: Pulmonary tuberculosis
     Dosage: FOR 2 WEEKS
     Route: 048
     Dates: start: 20230410
  2. BEDAQUILINE [Suspect]
     Active Substance: BEDAQUILINE
     Route: 048
     Dates: start: 20230424, end: 20230623
  3. PRETOMANID [Suspect]
     Active Substance: PRETOMANID
     Indication: Pulmonary tuberculosis
     Route: 065
     Dates: start: 20230410, end: 20230623
  4. LINEZOLID [Suspect]
     Active Substance: LINEZOLID
     Indication: Pulmonary tuberculosis
     Route: 065
     Dates: start: 20230410, end: 20230623
  5. MOXIFLOXACIN [Suspect]
     Active Substance: MOXIFLOXACIN
     Indication: Pulmonary tuberculosis
     Route: 065
     Dates: start: 20230410, end: 20230623
  6. IBUPROFEN [Concomitant]
     Active Substance: IBUPROFEN
     Indication: Pain
     Route: 048
     Dates: start: 20230413, end: 20230623

REACTIONS (1)
  - Malignant urinary tract neoplasm [Fatal]
